FAERS Safety Report 7714865-9 (Version None)
Quarter: 2011Q3

REPORT INFORMATION
  Report Type: 
  Country: None (occurrence: None)
  Receive Date: 20110822
  Receipt Date: 20110804
  Transmission Date: 20111222
  Serious: Yes (Death, Other)
  Sender: FDA-Public Use
  Company Number: 2011MA011473

PATIENT
  Age: 35 Year

DRUGS (8)
  1. METHADONE HCL [Suspect]
     Dosage: 0.2MG/L
  2. NORDIAZEPAM (NO PREF. NAME) [Suspect]
  3. DIAZEPAM [Suspect]
  4. D-9-THC (NO PREF. NAME) [Suspect]
  5. BENZTROPINE MESYLATE [Suspect]
  6. QUETIAPINE FUMARATE [Suspect]
  7. CODEINE SULFATE [Suspect]
  8. FLUOXETINE HYDROCHLORIDE [Suspect]

REACTIONS (9)
  - PULMONARY OEDEMA [None]
  - OVERDOSE [None]
  - PULMONARY CONGESTION [None]
  - RESPIRATORY DEPRESSION [None]
  - STUPOR [None]
  - FOAMING AT MOUTH [None]
  - SNORING [None]
  - TOXICITY TO VARIOUS AGENTS [None]
  - PNEUMONIA ASPIRATION [None]
